FAERS Safety Report 13867459 (Version 1)
Quarter: 2017Q3

REPORT INFORMATION
  Report Type: Spontaneous
  Country: US (occurrence: None)
  Receive Date: 20170814
  Receipt Date: 20170814
  Transmission Date: 20171127
  Serious: No
  Sender: FDA-Public Use
  Company Number: None

PATIENT
  Age: 68 Year
  Sex: Female

DRUGS (1)
  1. REPATHA [Suspect]
     Active Substance: EVOLOCUMAB
     Indication: HYPERCHOLESTEROLAEMIA
     Route: 058
     Dates: start: 20170725

REACTIONS (5)
  - Pruritus [None]
  - Rash erythematous [None]
  - Influenza like illness [None]
  - Vulvovaginal rash [None]
  - Body fat disorder [None]

NARRATIVE: CASE EVENT DATE: 20170808
